FAERS Safety Report 8544575-X (Version None)
Quarter: 2012Q3

REPORT INFORMATION
  Report Type: 
  Country: None (occurrence: None)
  Receive Date: 20120727
  Receipt Date: 20120723
  Transmission Date: 20120928
  Serious: Yes (Hospitalization, Other)
  Sender: FDA-Public Use
  Company Number: US-GILEAD-2012-0055348

PATIENT
  Sex: Female

DRUGS (1)
  1. LETAIRIS [Suspect]
     Indication: PRODUCT USED FOR UNKNOWN INDICATION
     Dosage: 10 MG, UNK
     Route: 048
     Dates: start: 20080403

REACTIONS (5)
  - LUNG INFECTION [None]
  - PULMONARY MASS [None]
  - LUNG NEOPLASM MALIGNANT [None]
  - BIOPSY LUNG [None]
  - DYSPNOEA [None]
